FAERS Safety Report 20079973 (Version 1)
Quarter: 2021Q4

REPORT INFORMATION
  Report Type: Spontaneous
  Country: GB (occurrence: GB)
  Receive Date: 20211117
  Receipt Date: 20211117
  Transmission Date: 20220303
  Serious: Yes (Death, Life-Threatening)
  Sender: FDA-Public Use
  Company Number: None

PATIENT
  Age: 71 Year
  Sex: Male
  Weight: 75 kg

DRUGS (19)
  1. BERIPLEX P/N [Suspect]
     Active Substance: COAGULATION FACTOR IX HUMAN\COAGULATION FACTOR VII HUMAN\COAGULATION FACTOR X HUMAN\PROTEIN C\PROTEI
     Indication: International normalised ratio increased
     Dosage: 2000 INTERNATIONAL UNIT
     Route: 042
     Dates: start: 20211023, end: 20211023
  2. BERIPLEX P/N [Suspect]
     Active Substance: COAGULATION FACTOR IX HUMAN\COAGULATION FACTOR VII HUMAN\COAGULATION FACTOR X HUMAN\PROTEIN C\PROTEI
     Indication: International normalised ratio increased
     Dosage: 2000 INTERNATIONAL UNIT
     Route: 042
     Dates: start: 20211023, end: 20211023
  3. CHOLECALCIFEROL [Concomitant]
     Active Substance: CHOLECALCIFEROL
     Indication: Ill-defined disorder
  4. CHOLECALCIFEROL [Concomitant]
     Active Substance: CHOLECALCIFEROL
     Indication: Ill-defined disorder
  5. FERROUS SULFATE [Concomitant]
     Active Substance: FERROUS SULFATE
     Indication: Ill-defined disorder
  6. FERROUS SULFATE [Concomitant]
     Active Substance: FERROUS SULFATE
     Indication: Ill-defined disorder
  7. LACTULOSE [Concomitant]
     Active Substance: LACTULOSE
     Indication: Ill-defined disorder
  8. LACTULOSE [Concomitant]
     Active Substance: LACTULOSE
     Indication: Ill-defined disorder
  9. LANSOPRAZOLE [Concomitant]
     Active Substance: LANSOPRAZOLE
     Indication: Ill-defined disorder
  10. LANSOPRAZOLE [Concomitant]
     Active Substance: LANSOPRAZOLE
     Indication: Ill-defined disorder
  11. MEROPENEM [Concomitant]
     Active Substance: MEROPENEM
     Indication: Ill-defined disorder
  12. MEROPENEM [Concomitant]
     Active Substance: MEROPENEM
     Indication: Ill-defined disorder
  13. ACETAMINOPHEN [Concomitant]
     Active Substance: ACETAMINOPHEN
     Indication: Ill-defined disorder
  14. ACETAMINOPHEN [Concomitant]
     Active Substance: ACETAMINOPHEN
     Indication: Ill-defined disorder
  15. RIFAXIMIN [Concomitant]
     Active Substance: RIFAXIMIN
     Indication: Ill-defined disorder
  16. RIFAXIMIN [Concomitant]
     Active Substance: RIFAXIMIN
     Indication: Ill-defined disorder
  17. THIAMINE [Concomitant]
     Active Substance: THIAMINE
     Indication: Ill-defined disorder
  18. THIAMINE [Concomitant]
     Active Substance: THIAMINE
     Indication: Ill-defined disorder
  19. VITAMIN K [Concomitant]
     Active Substance: PHYTONADIONE

REACTIONS (4)
  - Ventricular fibrillation [Fatal]
  - Intracardiac thrombus [Unknown]
  - Cardiac arrest [Fatal]
  - Acute myocardial infarction [Unknown]

NARRATIVE: CASE EVENT DATE: 20210101
